FAERS Safety Report 7779599-3 (Version None)
Quarter: 2011Q3

REPORT INFORMATION
  Report Type: 
  Country: None (occurrence: None)
  Receive Date: 20110927
  Receipt Date: 20110920
  Transmission Date: 20111222
  Serious: Yes (Other)
  Sender: FDA-Public Use
  Company Number: US-PURDUE-USA-2011-0069006

PATIENT
  Sex: Female

DRUGS (3)
  1. BUTRANS [Suspect]
     Indication: PAIN MANAGEMENT
  2. BUTRANS [Suspect]
     Indication: FIBROMYALGIA
     Dosage: 5 MCG/HR, UNK
     Route: 062
  3. BUTRANS [Suspect]
     Indication: PAIN
     Dosage: 10 MCG/HR, UNK
     Route: 062
     Dates: start: 20110701

REACTIONS (7)
  - CARDIAC VALVE DISEASE [None]
  - HEART VALVE INCOMPETENCE [None]
  - ANGINA PECTORIS [None]
  - PALPITATIONS [None]
  - DRUG INEFFECTIVE [None]
  - PERICARDITIS [None]
  - HEART RATE INCREASED [None]
